FAERS Safety Report 20709383 (Version 4)
Quarter: 2022Q4

REPORT INFORMATION
  Report Type: Report from Study
  Country: US (occurrence: US)
  Receive Date: 20220414
  Receipt Date: 20221027
  Transmission Date: 20230113
  Serious: Yes (Other)
  Sender: FDA-Public Use
  Company Number: US-NOVARTISPH-NVSC2022US084129

PATIENT
  Sex: Female

DRUGS (1)
  1. KESIMPTA [Suspect]
     Active Substance: OFATUMUMAB
     Indication: Multiple sclerosis
     Dosage: 20 MG, EVERY 28 DAYS
     Route: 058
     Dates: start: 20201215

REACTIONS (6)
  - Drop attacks [Unknown]
  - COVID-19 pneumonia [Unknown]
  - Loss of consciousness [Unknown]
  - Needle issue [Unknown]
  - Product temperature excursion issue [Unknown]
  - Incorrect dose administered [Unknown]
